FAERS Safety Report 16499657 (Version 1)
Quarter: 2019Q2

REPORT INFORMATION
  Report Type: Spontaneous
  Country: US (occurrence: US)
  Receive Date: 20190520
  Receipt Date: 20190520
  Transmission Date: 20190711
  Serious: No
  Sender: FDA-Public Use
  Company Number: None

PATIENT
  Age: 86 Year
  Sex: Male

DRUGS (1)
  1. ALLOPURINOL. [Suspect]
     Active Substance: ALLOPURINOL
     Dates: start: 201812

REACTIONS (5)
  - Drug ineffective [None]
  - Middle insomnia [None]
  - Sleep disorder [None]
  - Pruritus [None]
  - Initial insomnia [None]

NARRATIVE: CASE EVENT DATE: 20190121
